FAERS Safety Report 6339442-6 (Version None)
Quarter: 2009Q3

REPORT INFORMATION
  Report Type: 
  Country: None (occurrence: None)
  Receive Date: 20090903
  Receipt Date: 20090826
  Transmission Date: 20100115
  Serious: Yes (Other)
  Sender: FDA-Public Use
  Company Number: US-ELI_LILLY_AND_COMPANY-US200908006244

PATIENT
  Sex: Male

DRUGS (3)
  1. HUMULIN R [Suspect]
  2. HUMULIN N [Suspect]
  3. HUMALOG [Suspect]

REACTIONS (2)
  - CEREBROVASCULAR ACCIDENT [None]
  - CHEST PAIN [None]
